FAERS Safety Report 6298267-0 (Version None)
Quarter: 2009Q3

REPORT INFORMATION
  Report Type: 
  Country: None (occurrence: None)
  Receive Date: 20090805
  Receipt Date: 20090728
  Transmission Date: 20100115
  Serious: Yes (Other)
  Sender: FDA-Public Use
  Company Number: US-ASTRAZENECA-2009UW21392

PATIENT
  Age: 66 Year
  Sex: Male
  Weight: 90.7 kg

DRUGS (14)
  1. NEXIUM [Suspect]
     Indication: GASTROOESOPHAGEAL REFLUX DISEASE
     Route: 048
  2. LISINOPRIL [Concomitant]
     Route: 048
  3. SYNTHROID [Concomitant]
     Route: 048
  4. SALAGEN [Concomitant]
     Route: 048
  5. TOPROL-XL [Concomitant]
     Route: 048
  6. COUMADIN [Concomitant]
     Route: 048
  7. LIPITOR [Concomitant]
     Route: 048
  8. NIASPAN [Concomitant]
     Route: 048
  9. DIGOXIN [Concomitant]
     Route: 048
  10. NORVASC [Concomitant]
     Route: 048
  11. CENTRUM SILVER [Concomitant]
     Route: 048
  12. ASPIRIN [Concomitant]
     Route: 048
  13. FLONASE [Concomitant]
     Route: 048
  14. TRAVATAN [Concomitant]
     Dosage: ONE DROP IN EACH EYE DAILY
     Route: 047

REACTIONS (8)
  - AORTIC ANEURYSM [None]
  - CARDIAC PACEMAKER INSERTION [None]
  - CORONARY ARTERY BYPASS [None]
  - DENTAL CARIES [None]
  - RESORPTION BONE INCREASED [None]
  - STAPHYLOCOCCAL INFECTION [None]
  - TONSIL CANCER [None]
  - WOUND INFECTION STAPHYLOCOCCAL [None]
